FAERS Safety Report 8685071 (Version 7)
Quarter: 2013Q3

REPORT INFORMATION
  Report Type: Spontaneous
  Country: US (occurrence: US)
  Receive Date: 20120726
  Receipt Date: 20130905
  Transmission Date: 20140515
  Serious: No
  Sender: FDA-Public Use
  Company Number: US-ASTRAZENECA-2012SE44317

PATIENT
  Age: 59 Year
  Sex: Female
  Weight: 59.4 kg

DRUGS (20)
  1. SYMBICORT [Suspect]
     Indication: EMPHYSEMA
     Dosage: 160 MCG TWO TIMES A DAY
     Route: 055
     Dates: end: 201211
  2. SYMBICORT [Suspect]
     Indication: PULMONARY FIBROSIS
     Dosage: 160 MCG TWO TIMES A DAY
     Route: 055
     Dates: end: 201211
  3. SYMBICORT [Suspect]
     Indication: EMPHYSEMA
     Dosage: 160-4.5, UNKNOWN
     Route: 055
  4. SYMBICORT [Suspect]
     Indication: PULMONARY FIBROSIS
     Dosage: 160-4.5, UNKNOWN
     Route: 055
  5. SEROQUEL [Suspect]
     Indication: ABNORMAL BEHAVIOUR
     Route: 048
  6. SEROQUEL [Suspect]
     Indication: SLEEP DISORDER
     Route: 048
  7. SEROQUEL [Suspect]
     Indication: DEPRESSION
     Route: 048
  8. SEROQUEL [Suspect]
     Indication: ABNORMAL BEHAVIOUR
     Route: 048
  9. SEROQUEL [Suspect]
     Indication: SLEEP DISORDER
     Route: 048
  10. SEROQUEL [Suspect]
     Indication: DEPRESSION
     Route: 048
  11. SEROQUEL [Suspect]
     Indication: ABNORMAL BEHAVIOUR
     Route: 048
  12. SEROQUEL [Suspect]
     Indication: SLEEP DISORDER
     Route: 048
  13. SEROQUEL [Suspect]
     Indication: DEPRESSION
     Route: 048
  14. CLONAZEPAM [Concomitant]
  15. PRAVASTATIN [Concomitant]
  16. MEDROXYPROGESTERONE ACETATE [Concomitant]
  17. ESTRADIAL [Concomitant]
  18. HORMONE REPLACEMENT THEREPY [Concomitant]
  19. HYDROCODONE APAP [Concomitant]
     Dosage: 10/325 MG TWO TIMES A DAY
  20. OXYCONTIN [Concomitant]

REACTIONS (20)
  - Impaired work ability [Unknown]
  - Thinking abnormal [Unknown]
  - Regurgitation [Recovered/Resolved]
  - Depression [Unknown]
  - Mental disorder [Unknown]
  - Increased upper airway secretion [Recovered/Resolved]
  - Weight decreased [Unknown]
  - Malnutrition [Unknown]
  - Mood swings [Unknown]
  - Insomnia [Unknown]
  - Abdominal pain upper [Not Recovered/Not Resolved]
  - Panic attack [Unknown]
  - Abdominal discomfort [Unknown]
  - Decreased appetite [Unknown]
  - Agitation [Unknown]
  - Abdominal distension [Not Recovered/Not Resolved]
  - Adverse event [Not Recovered/Not Resolved]
  - Tremor [Unknown]
  - Off label use [Not Recovered/Not Resolved]
  - Drug dose omission [Unknown]
